FAERS Safety Report 22279448 (Version 2)
Quarter: 2023Q2

REPORT INFORMATION
  Report Type: Spontaneous
  Country: AU (occurrence: AU)
  Receive Date: 20230503
  Receipt Date: 20230616
  Transmission Date: 20230722
  Serious: Yes (Other)
  Sender: FDA-Public Use
  Company Number: AU-PFIZER INC-202300158188

PATIENT
  Age: 44 Year
  Sex: Female
  Weight: 84 kg

DRUGS (7)
  1. PRAZOSIN HYDROCHLORIDE [Suspect]
     Active Substance: PRAZOSIN HYDROCHLORIDE
     Indication: Hypertension
     Dosage: 27.5 MG, DAILY (7.5MG MORN, 10 MG AFTERNOON, 10 MG EVENING)
     Route: 048
     Dates: start: 2013
  2. PRAZOSIN HYDROCHLORIDE [Suspect]
     Active Substance: PRAZOSIN HYDROCHLORIDE
     Dosage: 27.5 MG, DAILY (7.5MG MORN, 10 MG AFTERNOON, 10 MG EVENING)
     Route: 048
     Dates: start: 20181119
  3. PERINDOPRIL [Concomitant]
     Active Substance: PERINDOPRIL
     Indication: Blood pressure abnormal
     Dosage: AT BED TIME, 8MG NOCTE
     Route: 048
     Dates: start: 2013
  4. SPIRONOLACTONE [Concomitant]
     Active Substance: SPIRONOLACTONE
     Indication: Blood pressure abnormal
     Dosage: 25 MG, DAILY
     Route: 048
     Dates: start: 2013
  5. ATORVASTATIN [Concomitant]
     Active Substance: ATORVASTATIN
     Indication: Blood cholesterol abnormal
     Dosage: 40 MG, DAILY
     Route: 048
     Dates: start: 202202
  6. NEBIVOLOL [Concomitant]
     Active Substance: NEBIVOLOL
     Indication: Arrhythmia
     Dosage: 0.5 MG, DAILY
     Route: 048
     Dates: start: 202202
  7. ASPIRIN [Concomitant]
     Active Substance: ASPIRIN
     Indication: Cardiac disorder
     Dosage: 100 MG, DAILY
     Route: 048
     Dates: start: 202202

REACTIONS (3)
  - Extrasystoles [Unknown]
  - Cardiomyopathy [Unknown]
  - Overdose [Unknown]

NARRATIVE: CASE EVENT DATE: 20130101
